FAERS Safety Report 24162862 (Version 1)
Quarter: 2024Q3

REPORT INFORMATION
  Report Type: Spontaneous
  Country: US (occurrence: None)
  Receive Date: 20240801
  Receipt Date: 20240801
  Transmission Date: 20241017
  Serious: Yes (Life-Threatening, Disabling, Other)
  Sender: Public
  Company Number: None

PATIENT
  Age: 37 Year
  Sex: Male
  Weight: 67.5 kg

DRUGS (7)
  1. XYWAV [Suspect]
     Active Substance: CALCIUM OXYBATE\MAGNESIUM OXYBATE\POTASSIUM OXYBATE\SODIUM OXYBATE
     Indication: Narcolepsy
  2. WAKIX [Concomitant]
     Active Substance: PITOLISANT HYDROCHLORIDE
  3. SUNOSI [Concomitant]
  4. duloxetiine [Concomitant]
  5. XANAX [Concomitant]
     Active Substance: ALPRAZOLAM
  6. PrEP [Concomitant]
  7. Fatty 5 and vitamin D [Concomitant]

REACTIONS (5)
  - Weight decreased [None]
  - Muscle atrophy [None]
  - Fatigue [None]
  - Insurance issue [None]
  - Therapy interrupted [None]

NARRATIVE: CASE EVENT DATE: 20220130
